FAERS Safety Report 8216757-8 (Version None)
Quarter: 2012Q1

REPORT INFORMATION
  Report Type: 
  Country: None (occurrence: None)
  Receive Date: 20120316
  Receipt Date: 20120307
  Transmission Date: 20120608
  Serious: Yes (Other)
  Sender: FDA-Public Use
  Company Number: BR-ROCHE-1046843

PATIENT
  Sex: Female
  Weight: 56 kg

DRUGS (6)
  1. FUROSEMIDE [Concomitant]
  2. MABTHERA [Suspect]
     Indication: RHEUMATOID ARTHRITIS
     Dates: start: 20110901, end: 20111001
  3. CLONIDINE HYDROCHLORIDE [Concomitant]
  4. AMLODIPINE [Concomitant]
  5. ASPIRIN [Concomitant]
  6. ENALAPRIL [Concomitant]

REACTIONS (1)
  - RED BLOOD CELL COUNT DECREASED [None]
